FAERS Safety Report 4810152-7 (Version None)
Quarter: 2005Q4

REPORT INFORMATION
  Report Type: 
  Country: None (occurrence: None)
  Receive Date: 20051024
  Receipt Date: 20051024
  Transmission Date: 20060501
  Serious: No
  Sender: FDA-Public Use
  Company Number: None

PATIENT

DRUGS (1)
  1. CEFAZOLIN [Suspect]
     Dosage: 1G, IV
     Route: 042

REACTIONS (1)
  - MEDICATION ERROR [None]
